FAERS Safety Report 5288490-6 (Version None)
Quarter: 2007Q2

REPORT INFORMATION
  Report Type: 
  Country: None (occurrence: None)
  Receive Date: 20070405
  Receipt Date: 20070323
  Transmission Date: 20071010
  Serious: Yes (Other)
  Sender: FDA-Public Use
  Company Number: IE-ELI_LILLY_AND_COMPANY-IE200702000150

PATIENT
  Age: 58 Year
  Sex: Female

DRUGS (2)
  1. FORTEO [Suspect]
     Indication: OSTEOPOROSIS
     Route: 058
     Dates: start: 20060701
  2. LIPITOR [Concomitant]

REACTIONS (1)
  - RESTLESS LEGS SYNDROME [None]
